FAERS Safety Report 7763984-X (Version None)
Quarter: 2011Q3

REPORT INFORMATION
  Report Type: 
  Country: None (occurrence: None)
  Receive Date: 20110916
  Receipt Date: 20110909
  Transmission Date: 20111222
  Serious: Yes (Other)
  Sender: FDA-Public Use
  Company Number: 2007AL004629

PATIENT
  Age: 27 Year
  Sex: Female

DRUGS (3)
  1. OLANZAPINE [Concomitant]
  2. DIAZEPAM [Suspect]
     Dosage: 2 MG;
  3. METHADONE HCL [Concomitant]

REACTIONS (3)
  - MATERNAL EXPOSURE DURING PREGNANCY [None]
  - INTRA-UTERINE DEATH [None]
  - DRUG INTERACTION [None]
